FAERS Safety Report 22253735 (Version 1)
Quarter: 2023Q2

REPORT INFORMATION
  Report Type: Spontaneous
  Country: IN (occurrence: IN)
  Receive Date: 20230426
  Receipt Date: 20230426
  Transmission Date: 20230721
  Serious: Yes (Hospitalization)
  Sender: FDA-Public Use
  Company Number: IN-STRIDES ARCOLAB LIMITED-2023SP006046

PATIENT
  Age: 21 Year
  Sex: Male
  Weight: 42 kg

DRUGS (12)
  1. TACROLIMUS [Suspect]
     Active Substance: TACROLIMUS
     Indication: Left ventricular dysfunction
     Dosage: 2 GRAM PER DAY; POST-OPERATIVE DAY 1
     Route: 065
  2. TACROLIMUS [Suspect]
     Active Substance: TACROLIMUS
     Dosage: UNK (DOSE DECREASED)
     Route: 065
  3. MYCOPHENOLATE MOFETIL [Suspect]
     Active Substance: MYCOPHENOLATE MOFETIL
     Indication: Left ventricular dysfunction
     Dosage: 2 GRAM PER DAY; POST-OPERATIVE DAY 1
     Route: 065
  4. MILRINONE [Concomitant]
     Active Substance: MILRINONE
     Indication: Product used for unknown indication
     Dosage: 0.75 MICROGRAM/KILOGRAM EVERY MINUTE
     Route: 065
  5. EPINEPHRINE [Concomitant]
     Active Substance: EPINEPHRINE
     Indication: Product used for unknown indication
     Dosage: 0.2 MICROGRAM/KILOGRAM EVERY MINUTE
     Route: 065
  6. NITRIC OXIDE [Concomitant]
     Active Substance: NITRIC OXIDE
     Indication: Product used for unknown indication
     Dosage: UNK; 20 PPM
     Route: 065
  7. BASILIXIMAB [Concomitant]
     Active Substance: BASILIXIMAB
     Indication: Heart transplant
     Dosage: 20 MILLIGRAM (INDUCTION THERAPY)
     Route: 065
  8. BASILIXIMAB [Concomitant]
     Active Substance: BASILIXIMAB
     Indication: Immunosuppressant drug therapy
     Dosage: UNK; RECEIVED SECOND DOSE
     Route: 065
  9. METHYLPREDNISOLONE [Concomitant]
     Active Substance: METHYLPREDNISOLONE
     Indication: Heart transplant
     Dosage: UNK (INDUCTION THERAPY)
     Route: 065
  10. METHYLPREDNISOLONE [Concomitant]
     Active Substance: METHYLPREDNISOLONE
     Indication: Immunosuppressant drug therapy
  11. PREDNISOLONE [Concomitant]
     Active Substance: PREDNISOLONE
     Indication: Heart transplant
     Dosage: 40 MILLIGRAM PER DAY (INDUCTION THERAPY)
     Route: 065
  12. PREDNISOLONE [Concomitant]
     Active Substance: PREDNISOLONE
     Indication: Immunosuppressant drug therapy

REACTIONS (2)
  - Peroneal nerve palsy [Recovered/Resolved]
  - Off label use [Unknown]
